FAERS Safety Report 16235153 (Version 1)
Quarter: 2019Q2

REPORT INFORMATION
  Report Type: Spontaneous
  Country: CN (occurrence: CN)
  Receive Date: 20190424
  Receipt Date: 20190424
  Transmission Date: 20190711
  Serious: Yes (Hospitalization, Other)
  Sender: FDA-Public Use
  Company Number: CN-ASTRAZENECA-2019SE55815

PATIENT
  Sex: Female
  Weight: 60 kg

DRUGS (2)
  1. IRESSA [Suspect]
     Active Substance: GEFITINIB
     Indication: NON-SMALL CELL LUNG CANCER
     Route: 048
     Dates: start: 20180827, end: 201904
  2. TAGRISSO [Concomitant]
     Active Substance: OSIMERTINIB
     Dates: start: 20190409

REACTIONS (5)
  - Pericardial effusion [Not Recovered/Not Resolved]
  - Drug resistance [Unknown]
  - Pleural effusion [Not Recovered/Not Resolved]
  - Product dose omission [Unknown]
  - Brain oedema [Not Recovered/Not Resolved]

NARRATIVE: CASE EVENT DATE: 201904
